FAERS Safety Report 23693249 (Version 3)
Quarter: 2024Q4

REPORT INFORMATION
  Report Type: Spontaneous
  Country: JP (occurrence: JP)
  Receive Date: 20240401
  Receipt Date: 20241129
  Transmission Date: 20250115
  Serious: Yes (Death, Other)
  Sender: ALEXION PHARMACEUTICALS
  Company Number: 2024A076423

PATIENT
  Age: 91 Year
  Weight: 38 kg

DRUGS (86)
  1. ONDEXXYA [Suspect]
     Active Substance: ANDEXANET ALFA
     Indication: Cerebellar haemorrhage
     Dosage: DOSE UNKNOWN
  2. ONDEXXYA [Suspect]
     Active Substance: ANDEXANET ALFA
     Dosage: DOSE UNKNOWN
  3. ONDEXXYA [Suspect]
     Active Substance: ANDEXANET ALFA
     Dosage: DOSE UNKNOWN
  4. ONDEXXYA [Suspect]
     Active Substance: ANDEXANET ALFA
     Dosage: DOSE UNKNOWN
  5. ONDEXXYA [Suspect]
     Active Substance: ANDEXANET ALFA
     Indication: Cerebellar haemorrhage
     Dosage: METHOD A: 400 MG IV AT A RATE OF 30 MG/MIN, FOLLOWED BY 480 MG IV AT A RATE OF 4 MG/MIN FOR 2 H
  6. ONDEXXYA [Suspect]
     Active Substance: ANDEXANET ALFA
     Dosage: METHOD A: 400 MG IV AT A RATE OF 30 MG/MIN, FOLLOWED BY 480 MG IV AT A RATE OF 4 MG/MIN FOR 2 H
  7. ONDEXXYA [Suspect]
     Active Substance: ANDEXANET ALFA
     Dosage: METHOD A: 400 MG IV AT A RATE OF 30 MG/MIN, FOLLOWED BY 480 MG IV AT A RATE OF 4 MG/MIN FOR 2 H
  8. ONDEXXYA [Suspect]
     Active Substance: ANDEXANET ALFA
     Dosage: METHOD A: 400 MG IV AT A RATE OF 30 MG/MIN, FOLLOWED BY 480 MG IV AT A RATE OF 4 MG/MIN FOR 2 H
  9. EDOXABAN TOSYLATE [Suspect]
     Active Substance: EDOXABAN TOSYLATE
  10. EDOXABAN TOSYLATE [Suspect]
     Active Substance: EDOXABAN TOSYLATE
  11. EDOXABAN TOSYLATE [Suspect]
     Active Substance: EDOXABAN TOSYLATE
  12. EDOXABAN TOSYLATE [Suspect]
     Active Substance: EDOXABAN TOSYLATE
  13. VIBEGRON [Concomitant]
     Active Substance: VIBEGRON
     Indication: Hypertonic bladder
  14. VIBEGRON [Concomitant]
     Active Substance: VIBEGRON
  15. VIBEGRON [Concomitant]
     Active Substance: VIBEGRON
  16. VIBEGRON [Concomitant]
     Active Substance: VIBEGRON
  17. LANSOPRAZOLE [Concomitant]
     Active Substance: LANSOPRAZOLE
     Indication: Gastritis prophylaxis
  18. LANSOPRAZOLE [Concomitant]
     Active Substance: LANSOPRAZOLE
  19. LANSOPRAZOLE [Concomitant]
     Active Substance: LANSOPRAZOLE
  20. LANSOPRAZOLE [Concomitant]
     Active Substance: LANSOPRAZOLE
  21. LANSOPRAZOLE [Concomitant]
     Active Substance: LANSOPRAZOLE
  22. LANSOPRAZOLE [Concomitant]
     Active Substance: LANSOPRAZOLE
  23. LANSOPRAZOLE [Concomitant]
     Active Substance: LANSOPRAZOLE
  24. LANSOPRAZOLE [Concomitant]
     Active Substance: LANSOPRAZOLE
  25. DULOXETINE [Concomitant]
     Active Substance: DULOXETINE
     Indication: Diabetic neuropathy
  26. DULOXETINE [Concomitant]
     Active Substance: DULOXETINE
  27. DULOXETINE [Concomitant]
     Active Substance: DULOXETINE
  28. DULOXETINE [Concomitant]
     Active Substance: DULOXETINE
  29. ELDECALCITOL [Concomitant]
     Active Substance: ELDECALCITOL
     Indication: Osteoporosis
  30. ELDECALCITOL [Concomitant]
     Active Substance: ELDECALCITOL
  31. ELDECALCITOL [Concomitant]
     Active Substance: ELDECALCITOL
  32. ELDECALCITOL [Concomitant]
     Active Substance: ELDECALCITOL
  33. VILDAGLIPTIN [Concomitant]
     Active Substance: VILDAGLIPTIN
     Indication: Diabetes mellitus
  34. VILDAGLIPTIN [Concomitant]
     Active Substance: VILDAGLIPTIN
  35. VILDAGLIPTIN [Concomitant]
     Active Substance: VILDAGLIPTIN
  36. VILDAGLIPTIN [Concomitant]
     Active Substance: VILDAGLIPTIN
  37. MAGNESIUM OXIDE [Concomitant]
     Active Substance: MAGNESIUM OXIDE
     Indication: Constipation
  38. MAGNESIUM OXIDE [Concomitant]
     Active Substance: MAGNESIUM OXIDE
     Indication: Constipation prophylaxis
  39. MAGNESIUM OXIDE [Concomitant]
     Active Substance: MAGNESIUM OXIDE
  40. MAGNESIUM OXIDE [Concomitant]
     Active Substance: MAGNESIUM OXIDE
  41. PRAVASTATIN SODIUM [Concomitant]
     Active Substance: PRAVASTATIN SODIUM
     Indication: Dyslipidaemia
  42. PRAVASTATIN SODIUM [Concomitant]
     Active Substance: PRAVASTATIN SODIUM
  43. PRAVASTATIN SODIUM [Concomitant]
     Active Substance: PRAVASTATIN SODIUM
  44. PRAVASTATIN SODIUM [Concomitant]
     Active Substance: PRAVASTATIN SODIUM
  45. MOSAPRIDE CITRATE DIHYDRATE [Concomitant]
     Active Substance: MOSAPRIDE CITRATE DIHYDRATE
     Indication: Gastritis prophylaxis
  46. MOSAPRIDE CITRATE DIHYDRATE [Concomitant]
     Active Substance: MOSAPRIDE CITRATE DIHYDRATE
  47. MOSAPRIDE CITRATE DIHYDRATE [Concomitant]
     Active Substance: MOSAPRIDE CITRATE DIHYDRATE
  48. MOSAPRIDE CITRATE DIHYDRATE [Concomitant]
     Active Substance: MOSAPRIDE CITRATE DIHYDRATE
  49. HERBAL NOS [Concomitant]
     Active Substance: HERBALS
     Indication: Decreased appetite
  50. HERBAL NOS [Concomitant]
     Active Substance: HERBALS
  51. VOGLIBOSE [Concomitant]
     Active Substance: VOGLIBOSE
     Indication: Diabetes mellitus
  52. VOGLIBOSE [Concomitant]
     Active Substance: VOGLIBOSE
  53. VOGLIBOSE [Concomitant]
     Active Substance: VOGLIBOSE
  54. VOGLIBOSE [Concomitant]
     Active Substance: VOGLIBOSE
  55. DAYVIGO [Concomitant]
     Active Substance: LEMBOREXANT
     Indication: Insomnia
  56. DAYVIGO [Concomitant]
     Active Substance: LEMBOREXANT
  57. DAYVIGO [Concomitant]
     Active Substance: LEMBOREXANT
  58. DAYVIGO [Concomitant]
     Active Substance: LEMBOREXANT
  59. HERBALS [Concomitant]
     Active Substance: HERBALS
     Indication: Insomnia
  60. HERBALS [Concomitant]
     Active Substance: HERBALS
  61. METHYLCOBALAMIN [Concomitant]
     Active Substance: METHYLCOBALAMIN
     Indication: Diabetic neuropathy
  62. METHYLCOBALAMIN [Concomitant]
     Active Substance: METHYLCOBALAMIN
  63. METHYLCOBALAMIN [Concomitant]
     Active Substance: METHYLCOBALAMIN
  64. METHYLCOBALAMIN [Concomitant]
     Active Substance: METHYLCOBALAMIN
  65. ACETAMINOPHEN [Concomitant]
     Active Substance: ACETAMINOPHEN
  66. ACETAMINOPHEN [Concomitant]
     Active Substance: ACETAMINOPHEN
  67. ACETAMINOPHEN [Concomitant]
     Active Substance: ACETAMINOPHEN
  68. ACETAMINOPHEN [Concomitant]
     Active Substance: ACETAMINOPHEN
  69. ACETAMINOPHEN [Concomitant]
     Active Substance: ACETAMINOPHEN
  70. ACETAMINOPHEN [Concomitant]
     Active Substance: ACETAMINOPHEN
  71. ACETAMINOPHEN [Concomitant]
     Active Substance: ACETAMINOPHEN
  72. ACETAMINOPHEN [Concomitant]
     Active Substance: ACETAMINOPHEN
  73. ALENDRONATE [Concomitant]
     Active Substance: ALENDRONATE SODIUM
     Indication: Osteoporosis
  74. ALENDRONATE [Concomitant]
     Active Substance: ALENDRONATE SODIUM
  75. ALENDRONATE [Concomitant]
     Active Substance: ALENDRONATE SODIUM
  76. ALENDRONATE [Concomitant]
     Active Substance: ALENDRONATE SODIUM
  77. ALENDRONATE [Concomitant]
     Active Substance: ALENDRONATE SODIUM
  78. ALENDRONATE [Concomitant]
     Active Substance: ALENDRONATE SODIUM
  79. ALENDRONATE [Concomitant]
     Active Substance: ALENDRONATE SODIUM
  80. ALENDRONATE [Concomitant]
     Active Substance: ALENDRONATE SODIUM
  81. POTASSIUM GLUCONATE [Concomitant]
     Active Substance: POTASSIUM GLUCONATE
     Dosage: 4 MEQ/G/DOSE, 3 G/DAY
  82. POTASSIUM GLUCONATE [Concomitant]
     Active Substance: POTASSIUM GLUCONATE
     Dosage: 4 MEQ/G/DOSE, 3 G/DAY
  83. ONDEXXYA [Suspect]
     Active Substance: ANDEXANET ALFA
     Indication: Cerebellar haemorrhage
  84. ONDEXXYA [Suspect]
     Active Substance: ANDEXANET ALFA
  85. ONDEXXYA [Suspect]
     Active Substance: ANDEXANET ALFA
     Indication: Cerebellar haemorrhage
  86. ONDEXXYA [Suspect]
     Active Substance: ANDEXANET ALFA

REACTIONS (7)
  - Pneumonia aspiration [Fatal]
  - Bundle branch block left [Unknown]
  - Myocardial ischaemia [Unknown]
  - General physical health deterioration [Unknown]
  - Blood pressure systolic increased [Unknown]
  - Strabismus [Unknown]
  - Renal impairment [Unknown]
